FAERS Safety Report 10166796 (Version 1)
Quarter: 2014Q2

REPORT INFORMATION
  Report Type: Spontaneous
  Country: US (occurrence: None)
  Receive Date: 20140509
  Receipt Date: 20140509
  Transmission Date: 20141212
  Serious: Yes (Other)
  Sender: FDA-Public Use
  Company Number: None

PATIENT
  Age: 42 Year
  Sex: Female
  Weight: 89.81 kg

DRUGS (7)
  1. CYMBALTA [Suspect]
     Indication: DEPRESSION
     Route: 048
     Dates: start: 20090210, end: 20140228
  2. CYMBALTA [Suspect]
     Indication: FIBROMYALGIA
     Route: 048
     Dates: start: 20090210, end: 20140228
  3. IMITREX [Concomitant]
  4. OMEPRAZOLE [Concomitant]
  5. XANAX [Concomitant]
  6. GILDESS FE [Concomitant]
  7. PRENATAL VITAMINS [Concomitant]

REACTIONS (6)
  - Drug intolerance [None]
  - Depression [None]
  - Confusional state [None]
  - Tearfulness [None]
  - Fatigue [None]
  - Insomnia [None]
